FAERS Safety Report 10448322 (Version 1)
Quarter: 2014Q3

REPORT INFORMATION
  Report Type: Spontaneous
  Country: US (occurrence: US)
  Receive Date: 20140911
  Receipt Date: 20140911
  Transmission Date: 20150326
  Serious: Yes (Other)
  Sender: FDA-Public Use
  Company Number: US-UPSHER-SMITH LABORATORIES, INC.-14002376

PATIENT

DRUGS (11)
  1. TURMERIC [Concomitant]
     Active Substance: TURMERIC
     Dosage: UNK,UNK
     Route: 065
  2. CARVEDILOL. [Suspect]
     Active Substance: CARVEDILOL
     Indication: ATRIAL FIBRILLATION
     Dosage: 10 MG, BID
     Route: 048
     Dates: start: 2009, end: 2009
  3. GINGER. [Concomitant]
     Active Substance: GINGER
  4. COREG CR [Suspect]
     Active Substance: CARVEDILOL PHOSPHATE
     Indication: CARDIOMYOPATHY
  5. CARVEDILOL. [Suspect]
     Active Substance: CARVEDILOL
     Indication: CARDIOMYOPATHY
  6. FISH OIL [Concomitant]
     Active Substance: FISH OIL
     Route: 065
  7. DIGOXIN. [Suspect]
     Active Substance: DIGOXIN
     Indication: ATRIAL FIBRILLATION
     Dosage: 0.125 MG, QD
     Route: 065
     Dates: start: 2012
  8. COREG CR [Suspect]
     Active Substance: CARVEDILOL PHOSPHATE
     Indication: ATRIAL FIBRILLATION
     Dosage: 20 MG, QD
     Route: 048
     Dates: start: 2004
  9. PACERONE [Suspect]
     Active Substance: AMIODARONE HYDROCHLORIDE
     Indication: PRODUCT USED FOR UNKNOWN INDICATION
     Dosage: UNK, UNK
     Route: 048
     Dates: start: 2010, end: 2010
  10. COREG CR [Suspect]
     Active Substance: CARVEDILOL PHOSPHATE
     Indication: CARDIAC OPERATION
  11. CARVEDILOL. [Suspect]
     Active Substance: CARVEDILOL
     Indication: CARDIAC OPERATION

REACTIONS (12)
  - Pertussis [Recovering/Resolving]
  - Cardiac pacemaker insertion [Not Recovered/Not Resolved]
  - Product substitution issue [None]
  - Cardiomyopathy [Not Recovered/Not Resolved]
  - Drug ineffective [Recovering/Resolving]
  - Dyspnoea [Recovering/Resolving]
  - Mobility decreased [Not Recovered/Not Resolved]
  - Heart valve incompetence [Not Recovered/Not Resolved]
  - Product quality issue [None]
  - Burning sensation [Recovering/Resolving]
  - Heart rate decreased [Recovering/Resolving]
  - Blood pressure decreased [Recovering/Resolving]

NARRATIVE: CASE EVENT DATE: 2010
